FAERS Safety Report 5127261-8 (Version None)
Quarter: 2006Q4

REPORT INFORMATION
  Report Type: 
  Country: None (occurrence: None)
  Receive Date: 20061010
  Receipt Date: 20060928
  Transmission Date: 20070319
  Serious: Yes (Other)
  Sender: FDA-Public Use
  Company Number: UKP06000243

PATIENT
  Age: 78 Year
  Sex: Female
  Weight: 70 kg

DRUGS (7)
  1. ACTONEL [Suspect]
     Indication: OSTEOPENIA
     Dosage: 1 DF, 1/WEEK, ORAL
     Route: 048
     Dates: start: 20060501, end: 20060601
  2. ARTHROTEC [Concomitant]
  3. DIDRONEL PMO (ETIDRONATE DISODIUM/CALCIUM CARBONATE CYCLICAL) [Concomitant]
  4. NEBIVOLOL (NEBIVOLOL) [Concomitant]
  5. SERETIDE ^ALLEN HANBURYS LTD^ (FLUTICASONE PROPIONATE, SALMETEROL XINA [Concomitant]
  6. SPIRIVA [Concomitant]
  7. VISCOTEARS (CARBOMER) [Concomitant]

REACTIONS (2)
  - ECZEMA [None]
  - HYPERKERATOSIS PALMARIS AND PLANTARIS [None]
